FAERS Safety Report 4738921-2 (Version None)
Quarter: 2005Q3

REPORT INFORMATION
  Report Type: 
  Country: None (occurrence: None)
  Receive Date: 20050805
  Receipt Date: 20050724
  Transmission Date: 20060218
  Serious: Yes (Other)
  Sender: FDA-Public Use
  Company Number: 2005105381

PATIENT
  Age: 27 Year
  Sex: Female

DRUGS (1)
  1. UNISOM SLEEPGELS (DIPHENHYDRAMINE) [Suspect]
     Indication: DEPRESSED MOOD
     Dosage: 6 SLEEPGELS ONCE, ORAL
     Route: 048
     Dates: start: 20050724, end: 20050724

REACTIONS (3)
  - FEELING ABNORMAL [None]
  - PALLOR [None]
  - TREMOR [None]
